FAERS Safety Report 21057371 (Version 1)
Quarter: 2022Q3

REPORT INFORMATION
  Report Type: Spontaneous
  Country: US (occurrence: None)
  Receive Date: 20220707
  Receipt Date: 20220707
  Transmission Date: 20221027
  Serious: Yes (Life-Threatening, Hospitalization)
  Sender: FDA-Public Use
  Company Number: None

PATIENT
  Age: 72 Year
  Sex: Female
  Weight: 76.5 kg

DRUGS (2)
  1. LOSARTAN [Suspect]
     Active Substance: LOSARTAN
     Indication: Hypertension
     Dosage: OTHER QUANTITY : 1 TABLET(S);?FREQUENCY : DAILY;?
     Route: 048
     Dates: start: 20220222, end: 20220326
  2. GLIMEPIRIDE [Concomitant]
     Active Substance: GLIMEPIRIDE

REACTIONS (5)
  - Palpitations [None]
  - Extrasystoles [None]
  - Presyncope [None]
  - Electrolyte imbalance [None]
  - Blood potassium decreased [None]

NARRATIVE: CASE EVENT DATE: 20220325
